FAERS Safety Report 8456415 (Version 2)
Quarter: 2012Q4

REPORT INFORMATION
  Report Type: Report from Study
  Country: JP (occurrence: JP)
  Receive Date: 20120313
  Receipt Date: 20120904
  Transmission Date: 20130627
  Serious: Yes (Hospitalization)
  Sender: FDA-Public Use
  Company Number: JP-ACTELION-A-CH2010-38398

PATIENT
  Age: 66 Year
  Sex: Female

DRUGS (14)
  1. TRACLEER [Suspect]
     Indication: PULMONARY ARTERIAL HYPERTENSION
     Dosage: 62.5 mg, bid
     Route: 048
     Dates: start: 20100216, end: 20100330
  2. TRACLEER [Suspect]
     Dosage: 93.75 mg, bid
     Route: 048
     Dates: start: 20100331, end: 20100427
  3. TRACLEER [Suspect]
     Dosage: 62.5 mg, bid
     Route: 048
     Dates: start: 20100428, end: 20100511
  4. TRACLEER [Suspect]
     Dosage: 31.25 mg, bid
     Route: 048
     Dates: start: 20100512, end: 20100927
  5. TRACLEER [Suspect]
     Dosage: 62.5 mg, bid
     Route: 048
     Dates: start: 20100928, end: 20101025
  6. TRACLEER [Suspect]
     Dosage: 93.75 mg, bid
     Route: 048
     Dates: start: 20101026, end: 20101129
  7. TRACLEER [Suspect]
     Dosage: 125 mg, bid
     Route: 048
     Dates: start: 20101130
  8. WARFARIN SODIUM [Concomitant]
  9. FUROSEMIDE [Concomitant]
  10. NIFEDIPINE [Concomitant]
  11. PREDNISOLONE [Concomitant]
  12. ANASTROZOLE [Concomitant]
  13. VOGLIBOSE [Concomitant]
  14. GLYCYRRHIZIC ACID [Concomitant]

REACTIONS (5)
  - Liver function test abnormal [Recovering/Resolving]
  - Aspartate aminotransferase increased [Recovering/Resolving]
  - Alanine aminotransferase increased [Recovering/Resolving]
  - Blood alkaline phosphatase increased [Recovering/Resolving]
  - Gamma-glutamyltransferase increased [Recovering/Resolving]
